FAERS Safety Report 12633276 (Version 2)
Quarter: 2016Q3

REPORT INFORMATION
  Report Type: Spontaneous
  Country: US (occurrence: US)
  Receive Date: 20160808
  Receipt Date: 20160808
  Transmission Date: 20161109
  Serious: No
  Sender: FDA-Public Use
  Company Number: US-BEH-2016060242

PATIENT
  Age: 62 Year
  Sex: Female
  Weight: 82 kg

DRUGS (39)
  1. ALLEGRA [Concomitant]
     Active Substance: FEXOFENADINE HYDROCHLORIDE
  2. TROKENDI XR [Concomitant]
     Active Substance: TOPIRAMATE
  3. VOLTAREN [Concomitant]
     Active Substance: DICLOFENAC SODIUM
  4. PROAIR HFA [Concomitant]
     Active Substance: ALBUTEROL SULFATE
  5. HIZENTRA [Suspect]
     Active Substance: HUMAN IMMUNOGLOBULIN G
     Indication: IMMUNODEFICIENCY
     Route: 058
  6. DIPHENHYDRAMINE. [Concomitant]
     Active Substance: DIPHENHYDRAMINE
  7. ZETIA [Concomitant]
     Active Substance: EZETIMIBE
  8. POTASSIUM CITRATE ER [Concomitant]
  9. LEXAPRO [Concomitant]
     Active Substance: ESCITALOPRAM OXALATE
  10. TRAZODONE [Concomitant]
     Active Substance: TRAZODONE HYDROCHLORIDE
  11. HYDROCODONE-ACETAMINOPHEN [Concomitant]
     Active Substance: ACETAMINOPHEN\HYDROCODONE
  12. CRESTOR [Concomitant]
     Active Substance: ROSUVASTATIN CALCIUM
  13. FISH OIL [Concomitant]
     Active Substance: FISH OIL
  14. LIDOCAINE/PRILOCAINE [Concomitant]
     Active Substance: LIDOCAINE\PRILOCAINE
  15. COLCRYS [Concomitant]
     Active Substance: COLCHICINE
  16. SPIRIVA [Concomitant]
     Active Substance: TIOTROPIUM BROMIDE MONOHYDRATE
  17. TOPIRAMATE. [Concomitant]
     Active Substance: TOPIRAMATE
  18. TRETINOIN. [Concomitant]
     Active Substance: TRETINOIN
  19. ACIDOPHILUS PROBIOTIC [Concomitant]
  20. FLONASE [Concomitant]
     Active Substance: FLUTICASONE PROPIONATE
  21. HIZENTRA [Suspect]
     Active Substance: HUMAN IMMUNOGLOBULIN G
     Route: 058
  22. EPIPEN [Concomitant]
     Active Substance: EPINEPHRINE
  23. ZOCOR [Concomitant]
     Active Substance: SIMVASTATIN
  24. CLOBETASOL [Concomitant]
     Active Substance: CLOBETASOL
  25. AMBIEN [Concomitant]
     Active Substance: ZOLPIDEM TARTRATE
  26. ADVIL [Concomitant]
     Active Substance: IBUPROFEN
  27. SYNTHROID [Concomitant]
     Active Substance: LEVOTHYROXINE SODIUM
  28. DEXILANT DR [Concomitant]
  29. CYMBALTA [Concomitant]
     Active Substance: DULOXETINE HYDROCHLORIDE
  30. GABAPENTIN. [Concomitant]
     Active Substance: GABAPENTIN
  31. DIAZEPAM. [Concomitant]
     Active Substance: DIAZEPAM
  32. TURMERIC [Concomitant]
     Active Substance: TURMERIC
  33. ESTER-C [Concomitant]
     Active Substance: CALCIUM\VITAMINS
  34. HIZENTRA [Suspect]
     Active Substance: HUMAN IMMUNOGLOBULIN G
     Indication: IMMUNODEFICIENCY COMMON VARIABLE
     Route: 058
  35. ACETAMINOPHEN. [Concomitant]
     Active Substance: ACETAMINOPHEN
  36. MUPIROCIN. [Concomitant]
     Active Substance: MUPIROCIN
  37. DRUGS FOR OBSTRUCTIVE AIRWAY DISEASES [Concomitant]
  38. VITAMIN D3 [Concomitant]
     Active Substance: CHOLECALCIFEROL
  39. SINGULAIR [Concomitant]
     Active Substance: MONTELUKAST SODIUM

REACTIONS (1)
  - Bronchitis [Unknown]

NARRATIVE: CASE EVENT DATE: 201511
